FAERS Safety Report 12493730 (Version 2)
Quarter: 2016Q3

REPORT INFORMATION
  Report Type: Report from Study
  Country: DE (occurrence: DE)
  Receive Date: 20160623
  Receipt Date: 20160701
  Transmission Date: 20161109
  Serious: Yes (Hospitalization)
  Sender: FDA-Public Use
  Company Number: DE-ABBVIE-16P-062-1658279-00

PATIENT
  Age: 7 Month
  Sex: Male
  Weight: 4.28 kg

DRUGS (16)
  1. SYNAGIS [Suspect]
     Active Substance: PALIVIZUMAB
     Route: 030
     Dates: start: 20151229, end: 20151229
  2. HEXAVALENT VACCINE [Concomitant]
     Indication: PRODUCT USED FOR UNKNOWN INDICATION
     Route: 065
     Dates: start: 20150729, end: 20150729
  3. HEXAVALENT VACCINE [Concomitant]
     Route: 065
     Dates: start: 20160210, end: 20160210
  4. SYNAGIS [Suspect]
     Active Substance: PALIVIZUMAB
     Route: 030
     Dates: start: 20160330, end: 20160330
  5. FERRO SANOL [Concomitant]
     Active Substance: FERROUS GLYCINE SULFATE
     Indication: IRON DEFICIENCY
     Route: 048
     Dates: start: 201505
  6. PNEUMOCOCCAL VACCINE POLYVALENT NOS [Concomitant]
     Active Substance: PNEUMOCOCCAL VACCINE POLYVALENT
     Route: 065
     Dates: start: 20150901, end: 20150901
  7. SYNAGIS [Suspect]
     Active Substance: PALIVIZUMAB
     Indication: ANTIVIRAL PROPHYLAXIS
     Route: 030
     Dates: start: 20150928, end: 20150928
  8. LEVOTHYROXINE. [Concomitant]
     Active Substance: LEVOTHYROXINE
     Indication: HYPOTHYROIDISM
     Route: 048
     Dates: start: 201505
  9. SYNAGIS [Suspect]
     Active Substance: PALIVIZUMAB
     Indication: PREMATURE BABY
     Route: 030
     Dates: start: 20151027, end: 20151027
  10. SYNAGIS [Suspect]
     Active Substance: PALIVIZUMAB
     Indication: OESOPHAGEAL ATRESIA
     Route: 030
     Dates: start: 20151124, end: 20151124
  11. HEXAVALENT VACCINE [Concomitant]
     Route: 065
     Dates: start: 20150901, end: 20150901
  12. PNEUMOCOCCAL VACCINE POLYVALENT NOS [Concomitant]
     Active Substance: PNEUMOCOCCAL VACCINE POLYVALENT
     Indication: PRODUCT USED FOR UNKNOWN INDICATION
     Route: 065
     Dates: start: 20150729, end: 20150729
  13. PNEUMOCOCCAL VACCINE POLYVALENT NOS [Concomitant]
     Active Substance: PNEUMOCOCCAL VACCINE POLYVALENT
     Route: 065
     Dates: start: 20160210, end: 20160210
  14. SYNAGIS [Suspect]
     Active Substance: PALIVIZUMAB
     Route: 030
     Dates: start: 20160127, end: 20160127
  15. SYNAGIS [Suspect]
     Active Substance: PALIVIZUMAB
     Route: 030
     Dates: start: 20160224, end: 20160224
  16. SYNAGIS [Suspect]
     Active Substance: PALIVIZUMAB
     Route: 030
     Dates: start: 20160427, end: 20160427

REACTIONS (5)
  - Inflammatory marker increased [Recovered/Resolved]
  - Rhinovirus infection [Recovered/Resolved]
  - Bronchitis [Recovered/Resolved]
  - Influenza [Recovered/Resolved]
  - Superinfection bacterial [Recovered/Resolved]

NARRATIVE: CASE EVENT DATE: 20151219
